FAERS Safety Report 10766194 (Version 2)
Quarter: 2015Q2

REPORT INFORMATION
  Report Type: Report from Study
  Country: TR (occurrence: TR)
  Receive Date: 20150205
  Receipt Date: 20150428
  Transmission Date: 20150821
  Serious: Yes (Hospitalization, Other)
  Sender: FDA-Public Use
  Company Number: TR-NOVOPROD-409126

PATIENT
  Age: 21 Year
  Sex: Female
  Weight: 58 kg

DRUGS (6)
  1. LANTUS [Concomitant]
     Active Substance: INSULIN GLARGINE
     Indication: TYPE 1 DIABETES MELLITUS
     Dosage: 18 U, QD
     Route: 058
     Dates: start: 2012, end: 20140423
  2. ACTRAPID [Suspect]
     Active Substance: INSULIN HUMAN
     Indication: TYPE 1 DIABETES MELLITUS
     Dosage: 36 U, QD
     Route: 058
     Dates: start: 20140424
  3. NOVORAPID [Suspect]
     Active Substance: INSULIN ASPART
     Indication: TYPE 1 DIABETES MELLITUS
     Dosage: 36 U, QD
     Route: 058
     Dates: start: 2012, end: 20140423
  4. ELEVIT                             /01730301/ [Concomitant]
     Indication: VITAMIN SUPPLEMENTATION
     Dosage: 1X1
     Route: 048
     Dates: start: 20140424, end: 201405
  5. FERRUM FORT [Concomitant]
     Indication: MINERAL SUPPLEMENTATION
     Dosage: BID
     Route: 048
     Dates: start: 20140424, end: 201405
  6. INSULATARD NPH HUMAN [Suspect]
     Active Substance: INSULIN HUMAN
     Indication: TYPE 1 DIABETES MELLITUS
     Dosage: 20 U, QD
     Route: 058
     Dates: start: 20140424

REACTIONS (3)
  - Exposure during pregnancy [Recovered/Resolved]
  - Foetal death [Recovered/Resolved]
  - Blood glucose abnormal [Unknown]

NARRATIVE: CASE EVENT DATE: 20140310
